FAERS Safety Report 6384507-6 (Version None)
Quarter: 2009Q4

REPORT INFORMATION
  Report Type: 
  Country: None (occurrence: None)
  Receive Date: 20091001
  Receipt Date: 20090923
  Transmission Date: 20100525
  Serious: Yes (Death, Other)
  Sender: FDA-Public Use
  Company Number: HQWYE747217MAY05

PATIENT
  Sex: Female
  Weight: 49.94 kg

DRUGS (5)
  1. PREMPRO [Suspect]
     Indication: HORMONE REPLACEMENT THERAPY
     Dosage: UNSPECIFIED
     Route: 048
     Dates: start: 19970101, end: 20010101
  2. PREMPRO [Suspect]
     Indication: PROPHYLAXIS
  3. PREMPRO [Suspect]
     Indication: CARDIAC DISORDER
  4. PREMPRO [Suspect]
     Indication: OSTEOPOROSIS
  5. PREMPRO [Suspect]
     Indication: MENOPAUSAL SYMPTOMS

REACTIONS (1)
  - BREAST CANCER [None]
